FAERS Safety Report 7003882-2 (Version None)
Quarter: 2010Q3

REPORT INFORMATION
  Report Type: 
  Country: None (occurrence: None)
  Receive Date: 20100920
  Receipt Date: 20100112
  Transmission Date: 20110219
  Serious: No
  Sender: FDA-Public Use
  Company Number: US-WYE-H12685809

PATIENT
  Sex: Female

DRUGS (6)
  1. PRISTIQ [Suspect]
     Indication: DEPRESSION
     Route: 048
     Dates: start: 20090901, end: 20090101
  2. PRISTIQ [Suspect]
     Route: 048
     Dates: start: 20091001, end: 20090101
  3. PRISTIQ [Suspect]
     Route: 048
     Dates: start: 20090101
  4. CLONAZEPAM [Concomitant]
  5. REMERON [Concomitant]
  6. LISINOPRIL [Concomitant]

REACTIONS (6)
  - DRUG INEFFECTIVE [None]
  - ENERGY INCREASED [None]
  - FEELING ABNORMAL [None]
  - PRURITUS [None]
  - RASH ERYTHEMATOUS [None]
  - THERAPEUTIC RESPONSE UNEXPECTED [None]
